FAERS Safety Report 5521449-X (Version None)
Quarter: 2007Q4

REPORT INFORMATION
  Report Type: 
  Country: None (occurrence: None)
  Receive Date: 20071119
  Receipt Date: 20071107
  Transmission Date: 20080405
  Serious: Yes (Other)
  Sender: FDA-Public Use
  Company Number: DE-PFIZER INC-2007069112

PATIENT
  Sex: Male
  Weight: 116 kg

DRUGS (3)
  1. LYRICA [Suspect]
     Route: 048
  2. NEURONTIN [Concomitant]
     Route: 048
  3. IBUPROFEN TABLETS [Concomitant]
     Route: 048

REACTIONS (4)
  - VISION BLURRED [None]
  - VISUAL FIELD DEFECT [None]
  - VITREOUS DETACHMENT [None]
  - VITREOUS OPACITIES [None]
